FAERS Safety Report 21294392 (Version 1)
Quarter: 2022Q3

REPORT INFORMATION
  Report Type: Report from Study
  Country: US (occurrence: US)
  Receive Date: 20220905
  Receipt Date: 20220905
  Transmission Date: 20221027
  Serious: No
  Sender: FDA-Public Use
  Company Number: US-BIOVITRUM-2022US10109

PATIENT
  Age: 56 Year
  Sex: Female

DRUGS (2)
  1. KINERET [Suspect]
     Active Substance: ANAKINRA
     Indication: Urticaria thermal
     Dates: start: 201905
  2. KINERET [Suspect]
     Active Substance: ANAKINRA
     Indication: Cold urticaria

REACTIONS (2)
  - Sinusitis [Unknown]
  - Off label use [Not Recovered/Not Resolved]

NARRATIVE: CASE EVENT DATE: 20190501
